FAERS Safety Report 8154632 (Version 6)
Quarter: 2013Q4

REPORT INFORMATION
  Report Type: Report from Study
  Country: JP (occurrence: JP)
  Receive Date: 20110923
  Receipt Date: 20131230
  Transmission Date: 20140711
  Serious: Yes (Hospitalization)
  Sender: FDA-Public Use
  Company Number: JP-ROCHE-GNE324614

PATIENT
  Age: 85 Year
  Sex: Male
  Weight: 53.07 kg

DRUGS (4)
  1. RANIBIZUMAB [Suspect]
     Indication: AGE-RELATED MACULAR DEGENERATION
     Route: 050
     Dates: start: 20110728
  2. RANIBIZUMAB [Suspect]
     Route: 050
     Dates: start: 20110825
  3. RANIBIZUMAB [Suspect]
     Route: 050
     Dates: start: 20111215
  4. GATIFLO [Concomitant]
     Route: 065
     Dates: start: 201107, end: 201112

REACTIONS (1)
  - Retinal haemorrhage [Not Recovered/Not Resolved]
